FAERS Safety Report 9310218 (Version 2)
Quarter: 2013Q2

REPORT INFORMATION
  Report Type: Report from Study
  Country: CA (occurrence: CA)
  Receive Date: 20130527
  Receipt Date: 20130619
  Transmission Date: 20140414
  Serious: Yes (Death, Hospitalization, Other)
  Sender: FDA-Public Use
  Company Number: PHHY2013CA052328

PATIENT
  Sex: Male

DRUGS (1)
  1. SANDOSTATIN [Suspect]
     Indication: RECTAL CANCER
     Dosage: 100 UG, TID
     Route: 058
     Dates: start: 20130506

REACTIONS (9)
  - Intestinal infarction [Fatal]
  - Septic shock [Fatal]
  - Intestinal ischaemia [Fatal]
  - Gastrointestinal necrosis [Fatal]
  - Respiratory failure [Unknown]
  - Intestinal obstruction [Unknown]
  - Bacteraemia [Unknown]
  - Metastatic neoplasm [Unknown]
  - Constipation [Unknown]
